FAERS Safety Report 19498083 (Version 3)
Quarter: 2021Q3

REPORT INFORMATION
  Report Type: Spontaneous
  Country: US (occurrence: US)
  Receive Date: 20210706
  Receipt Date: 20210927
  Transmission Date: 20211014
  Serious: Yes (Hospitalization, Other)
  Sender: FDA-Public Use
  Company Number: US-PFIZER INC-2021779506

PATIENT
  Age: 56 Year
  Sex: Male

DRUGS (1)
  1. XELJANZ XR [Suspect]
     Active Substance: TOFACITINIB CITRATE
     Indication: RHEUMATOID ARTHRITIS
     Dosage: 11 MG, 1X/DAY
     Route: 048
     Dates: start: 20210519, end: 2021

REACTIONS (7)
  - Pain [Unknown]
  - Pneumonia fungal [Unknown]
  - Arthralgia [Unknown]
  - Movement disorder [Unknown]
  - Trismus [Unknown]
  - Hernia [Unknown]
  - Orthosis user [Unknown]

NARRATIVE: CASE EVENT DATE: 2021
